FAERS Safety Report 15830497 (Version 1)
Quarter: 2019Q1

REPORT INFORMATION
  Report Type: Spontaneous
  Country: US (occurrence: US)
  Receive Date: 20190115
  Receipt Date: 20190115
  Transmission Date: 20190417
  Serious: No
  Sender: FDA-Public Use
  Company Number: US-SA-2019SA009919

PATIENT
  Age: 18 Year
  Sex: Female

DRUGS (3)
  1. DUPIXENT [Suspect]
     Active Substance: DUPILUMAB
     Indication: RESPIRATORY DISORDER
  2. DUPIXENT [Suspect]
     Active Substance: DUPILUMAB
     Indication: FOOD ALLERGY
     Dosage: 600 MG, 1X
     Dates: start: 2018, end: 2018
  3. DUPIXENT [Suspect]
     Active Substance: DUPILUMAB
     Indication: MITE ALLERGY
     Dosage: 300 MG, QOW
     Dates: start: 2018

REACTIONS (1)
  - Off label use [Unknown]
